FAERS Safety Report 7782955-0 (Version None)
Quarter: 2011Q3

REPORT INFORMATION
  Report Type: 
  Country: None (occurrence: None)
  Receive Date: 20110927
  Receipt Date: 20110927
  Transmission Date: 20111222
  Serious: Yes (Death, Hospitalization)
  Sender: FDA-Public Use
  Company Number: None

PATIENT
  Age: 46 Year
  Sex: Female
  Weight: 76.7 kg

DRUGS (2)
  1. TEMOZOLOMIDE [Suspect]
     Dosage: 4480 MG
     Dates: end: 20110825
  2. AZD2171 (CEDIRANIB, RECENTIN) [Suspect]
     Dosage: 620 MG
     Dates: end: 20110825

REACTIONS (6)
  - ESCHERICHIA INFECTION [None]
  - BLOOD CULTURE POSITIVE [None]
  - PLATELET COUNT DECREASED [None]
  - WHITE BLOOD CELL COUNT DECREASED [None]
  - BLOOD URINE PRESENT [None]
  - BACTERIAL INFECTION [None]
